FAERS Safety Report 8954262 (Version 1)
Quarter: 2012Q4

REPORT INFORMATION
  Report Type: 
  Country: DE (occurrence: DE)
  Receive Date: 20121207
  Receipt Date: 20121207
  Transmission Date: 20130627
  Serious: Yes (Other)
  Sender: FDA-Public Use
  Company Number: PHHY2012DE112214

PATIENT
  Sex: Male

DRUGS (1)
  1. RITALINE [Suspect]
     Dosage: 40 mg, per day

REACTIONS (1)
  - Narcolepsy [Unknown]
